FAERS Safety Report 8880859 (Version 1)
Quarter: 2012Q4

REPORT INFORMATION
  Report Type: 
  Country: US (occurrence: US)
  Receive Date: 20121101
  Receipt Date: 20121101
  Transmission Date: 20130627
  Serious: Yes (Other)
  Sender: FDA-Public Use
  Company Number: US-ELI_LILLY_AND_COMPANY-US201210006519

PATIENT
  Sex: Male

DRUGS (1)
  1. CYMBALTA [Suspect]
     Indication: DEPRESSION
     Dosage: 30 mg, qd

REACTIONS (9)
  - Lower limb fracture [Unknown]
  - Fall [Recovered/Resolved]
  - Drug withdrawal syndrome [Unknown]
  - Feeling abnormal [Unknown]
  - Crying [Unknown]
  - Depression [Unknown]
  - Poor quality sleep [Unknown]
  - Nightmare [Unknown]
  - Tendonitis [Unknown]
